FAERS Safety Report 17338310 (Version 1)
Quarter: 2020Q1

REPORT INFORMATION
  Report Type: Spontaneous
  Country: US (occurrence: US)
  Receive Date: 20200128
  Receipt Date: 20200128
  Transmission Date: 20200409
  Serious: Yes (Life-Threatening, Other)
  Sender: FDA-Public Use
  Company Number: None

PATIENT
  Age: 52 Year
  Sex: Male
  Weight: 87.75 kg

DRUGS (4)
  1. LYRICA [Concomitant]
     Active Substance: PREGABALIN
  2. PREGABALIN CAPSULES [Suspect]
     Active Substance: PREGABALIN
     Indication: NEURALGIA
     Dosage: ?          QUANTITY:90 CAPSULE(S);?
     Route: 048
     Dates: start: 20200126, end: 20200127
  3. MORPHINE ER [Concomitant]
     Active Substance: MORPHINE
  4. ZOLPIDEM ER [Concomitant]
     Active Substance: ZOLPIDEM TARTRATE

REACTIONS (10)
  - Depressed level of consciousness [None]
  - Pain [None]
  - Nervousness [None]
  - Product substitution issue [None]
  - Presyncope [None]
  - Paraesthesia [None]
  - Product complaint [None]
  - Burning sensation [None]
  - Suicidal ideation [None]
  - Anxiety [None]

NARRATIVE: CASE EVENT DATE: 20200127
